FAERS Safety Report 23952949 (Version 1)
Quarter: 2024Q2

REPORT INFORMATION
  Report Type: Spontaneous
  Country: US (occurrence: US)
  Receive Date: 20240608
  Receipt Date: 20240608
  Transmission Date: 20240716
  Serious: No
  Sender: FDA-Public Use
  Company Number: US-ABBVIE-5783927

PATIENT
  Sex: Female

DRUGS (1)
  1. LINZESS [Suspect]
     Active Substance: LINACLOTIDE
     Indication: Constipation
     Dosage: START DATE- AT LEAST FIVE YEARS AGO
     Route: 048

REACTIONS (3)
  - Visual impairment [Unknown]
  - Diarrhoea [Unknown]
  - Therapeutic product effect incomplete [Unknown]
